FAERS Safety Report 5929747-2 (Version None)
Quarter: 2008Q3

REPORT INFORMATION
  Report Type: 
  Country: None (occurrence: None)
  Receive Date: 20080930
  Receipt Date: 20080715
  Transmission Date: 20090109
  Serious: Yes (Other)
  Sender: FDA-Public Use
  Company Number: PHEH2008US05800

PATIENT
  Age: 63 Year
  Sex: Female

DRUGS (2)
  1. EXELON [Suspect]
     Indication: DEMENTIA ALZHEIMER'S TYPE
     Dosage: 4.6 MG, QD, TRANSDERMAL; 2.3 MG, QD, TRANSDERMAL
     Route: 062
     Dates: start: 20080405, end: 20080626
  2. EXELON [Suspect]
     Indication: DEMENTIA ALZHEIMER'S TYPE
     Dosage: 4.6 MG, QD, TRANSDERMAL; 2.3 MG, QD, TRANSDERMAL
     Route: 062
     Dates: start: 20080707

REACTIONS (2)
  - CONVULSION [None]
  - FATIGUE [None]
